FAERS Safety Report 6650850-6 (Version None)
Quarter: 2010Q1

REPORT INFORMATION
  Report Type: 
  Country: None (occurrence: None)
  Receive Date: 20100325
  Receipt Date: 20100308
  Transmission Date: 20100710
  Serious: No
  Sender: FDA-Public Use
  Company Number: US-BIOGENIDEC-2010BI007484

PATIENT
  Age: 46 Year
  Sex: Female

DRUGS (2)
  1. TYSABRI [Suspect]
     Indication: MULTIPLE SCLEROSIS
     Route: 042
     Dates: start: 20070313
  2. LISINOPRIL [Concomitant]
     Indication: CARDIAC DISORDER

REACTIONS (3)
  - COUGH [None]
  - LUNG DISORDER [None]
  - NASOPHARYNGITIS [None]
